FAERS Safety Report 21326450 (Version 3)
Quarter: 2022Q3

REPORT INFORMATION
  Report Type: Spontaneous
  Country: US (occurrence: US)
  Receive Date: 20220913
  Receipt Date: 20220915
  Transmission Date: 20221027
  Serious: Yes (Other)
  Sender: FDA-Public Use
  Company Number: US-NOVARTISTESTPH-NVSC2022US206252

PATIENT
  Sex: Female

DRUGS (5)
  1. XIIDRA [Suspect]
     Active Substance: LIFITEGRAST
     Indication: Product used for unknown indication
     Dosage: 1 DOSAGE FORM
     Route: 065
  2. LYRICA [Concomitant]
     Active Substance: PREGABALIN
     Indication: Product used for unknown indication
     Dosage: 50 MG, QD (1 X DAY)
     Route: 065
  3. SONATA [Concomitant]
     Active Substance: ZALEPLON
     Indication: Product used for unknown indication
     Dosage: 10 MG, AS NEEDED
     Route: 065
  4. DIAZEPAM [Concomitant]
     Active Substance: DIAZEPAM
     Indication: Product used for unknown indication
     Dosage: 5 MG, AS NEEDED
     Route: 065
  5. HYZAAR [Concomitant]
     Active Substance: HYDROCHLOROTHIAZIDE\LOSARTAN POTASSIUM
     Indication: Product used for unknown indication
     Dosage: UNK, QD (100/25, 1 X DAY)
     Route: 065

REACTIONS (3)
  - Diabetes mellitus [Unknown]
  - Flushing [Unknown]
  - Feeling hot [Unknown]
